FAERS Safety Report 24588513 (Version 1)
Quarter: 2024Q4

REPORT INFORMATION
  Report Type: Spontaneous
  Country: IN (occurrence: IN)
  Receive Date: 20241107
  Receipt Date: 20241107
  Transmission Date: 20250115
  Serious: Yes (Hospitalization)
  Sender: MYLAN
  Company Number: IN-MYLANLABS-2024M1099709

PATIENT
  Age: 40 Year
  Sex: Male

DRUGS (6)
  1. MIRTAZAPINE [Suspect]
     Active Substance: MIRTAZAPINE
     Indication: Schizophrenia
     Dosage: 7.5 MILLIGRAM
     Route: 065
  2. ARIPIPRAZOLE [Suspect]
     Active Substance: ARIPIPRAZOLE
     Indication: Schizophrenia
     Dosage: 20 MILLIGRAM
     Route: 065
  3. CLOZAPINE [Suspect]
     Active Substance: CLOZAPINE
     Indication: Schizophrenia
     Dosage: UNK,GRADUALLY TITRATING UP TO 350MG
     Route: 065
  4. FLUOXETINE [Suspect]
     Active Substance: FLUOXETINE HYDROCHLORIDE
     Indication: Schizophrenia
     Dosage: 20 MILLIGRAM
     Route: 065
  5. OLANZAPINE [Suspect]
     Active Substance: OLANZAPINE
     Indication: Schizophrenia
     Dosage: 30 MILLIGRAM
     Route: 065
  6. RISPERIDONE [Suspect]
     Active Substance: RISPERIDONE
     Indication: Schizophrenia
     Dosage: 6 MILLIGRAM
     Route: 065

REACTIONS (1)
  - Drug ineffective [Unknown]
